FAERS Safety Report 16472543 (Version 3)
Quarter: 2019Q3

REPORT INFORMATION
  Report Type: Spontaneous
  Country: LT (occurrence: LT)
  Receive Date: 20190625
  Receipt Date: 20190716
  Transmission Date: 20191004
  Serious: Yes (Hospitalization, Other)
  Sender: FDA-Public Use
  Company Number: LT-BRISTOL-MYERS SQUIBB COMPANY-BMS-2019-061068

PATIENT
  Age: 69 Year
  Sex: Female

DRUGS (1)
  1. ELIQUIS [Suspect]
     Active Substance: APIXABAN
     Indication: PRODUCT USED FOR UNKNOWN INDICATION
     Dosage: 5 MILLIGRAM
     Route: 065

REACTIONS (3)
  - Nausea [Recovered/Resolved]
  - Rectal haemorrhage [Recovered/Resolved]
  - Asthenia [Recovered/Resolved]
